FAERS Safety Report 6259374-1 (Version None)
Quarter: 2009Q3

REPORT INFORMATION
  Report Type: 
  Country: None (occurrence: None)
  Receive Date: 20090706
  Receipt Date: 20090624
  Transmission Date: 20100115
  Serious: Yes (Hospitalization)
  Sender: FDA-Public Use
  Company Number: CERZ-1000728

PATIENT
  Age: 71 Year
  Sex: Female
  Weight: 76 kg

DRUGS (1)
  1. CEREZYME [Suspect]
     Indication: GAUCHER'S DISEASE
     Dosage: 60 U/KG, Q3W, INTRAVENOUS
     Route: 042
     Dates: start: 19921201

REACTIONS (6)
  - ARTHRITIS [None]
  - BLOOD PRESSURE INCREASED [None]
  - CHEST PAIN [None]
  - DYSARTHRIA [None]
  - ERYTHEMA [None]
  - INAPPROPRIATE ANTIDIURETIC HORMONE SECRETION [None]
